FAERS Safety Report 5429855-9 (Version None)
Quarter: 2007Q3

REPORT INFORMATION
  Report Type: 
  Country: None (occurrence: None)
  Receive Date: 20070827
  Receipt Date: 20070814
  Transmission Date: 20080115
  Serious: Yes (Congenital Anomaly)
  Sender: FDA-Public Use
  Company Number: GXKR2007GB07028

PATIENT

DRUGS (1)
  1. TRIMETHOPRIM [Suspect]
     Dosage: 200 MG, TRANSPLACENTAL
     Route: 064

REACTIONS (2)
  - BLADDER OBSTRUCTION [None]
  - DRUG EXPOSURE DURING PREGNANCY [None]
